FAERS Safety Report 11940424 (Version 1)
Quarter: 2016Q1

REPORT INFORMATION
  Report Type: Spontaneous
  Country: US (occurrence: US)
  Receive Date: 20160122
  Receipt Date: 20160122
  Transmission Date: 20160526
  Serious: No
  Sender: FDA-Public Use
  Company Number: US-DYAX CORP.-2015DX000256

PATIENT
  Sex: Female
  Weight: 64.92 kg

DRUGS (2)
  1. KALBITOR [Suspect]
     Active Substance: ECALLANTIDE
     Route: 058
  2. KALBITOR [Suspect]
     Active Substance: ECALLANTIDE
     Indication: HEREDITARY ANGIOEDEMA
     Route: 058
     Dates: start: 20150521, end: 20150521

REACTIONS (6)
  - Muscular weakness [Unknown]
  - Migraine [Unknown]
  - Viral infection [Unknown]
  - Influenza like illness [Unknown]
  - Abnormal faeces [Unknown]
  - Adverse event [Unknown]

NARRATIVE: CASE EVENT DATE: 2015
